FAERS Safety Report 5736262-8 (Version None)
Quarter: 2008Q2

REPORT INFORMATION
  Report Type: 
  Country: None (occurrence: None)
  Receive Date: 20080513
  Receipt Date: 20080502
  Transmission Date: 20081010
  Serious: Yes (Other)
  Sender: FDA-Public Use
  Company Number: JP-MERCK-0803USA01811

PATIENT
  Age: 75 Year
  Sex: Female

DRUGS (4)
  1. FOSAMAX [Suspect]
     Indication: OSTEOPOROSIS
     Route: 048
     Dates: start: 20080128, end: 20080304
  2. ALFAROL [Concomitant]
     Indication: OSTEOPOROSIS
     Route: 048
     Dates: start: 20030201
  3. FLOMOX [Concomitant]
     Indication: INFECTION PROPHYLAXIS
     Route: 048
     Dates: start: 20080116, end: 20080118
  4. LOXONIN [Concomitant]
     Indication: PAIN
     Route: 048
     Dates: start: 20080116

REACTIONS (2)
  - IMPAIRED HEALING [None]
  - OSTEONECROSIS [None]
